FAERS Safety Report 4596046-3 (Version None)
Quarter: 2005Q1

REPORT INFORMATION
  Report Type: 
  Country: None (occurrence: None)
  Receive Date: 20050224
  Receipt Date: 20050224
  Transmission Date: 20050727
  Serious: Yes (Other)
  Sender: FDA-Public Use
  Company Number: None

PATIENT
  Age: 34 Year
  Sex: Male

DRUGS (2)
  1. OXYCONTIN [Suspect]
     Indication: NECK PAIN
     Dosage: 80 MG Q 8 H
  2. OXYCONTIN [Suspect]
     Indication: PARAPLEGIA
     Dosage: 80 MG Q 8 H

REACTIONS (2)
  - DRUG INEFFECTIVE [None]
  - PHARMACEUTICAL PRODUCT COMPLAINT [None]
